FAERS Safety Report 13918054 (Version 10)
Quarter: 2018Q4

REPORT INFORMATION
  Report Type: Report from Study
  Country: CA (occurrence: CA)
  Receive Date: 20170829
  Receipt Date: 20181008
  Transmission Date: 20190204
  Serious: Yes (Hospitalization, Other)
  Sender: FDA-Public Use
  Company Number: CA-BRISTOL-MYERS SQUIBB COMPANY-BMS-2017-075814

PATIENT
  Age: 55 Year
  Sex: Female

DRUGS (1)
  1. ABATACEPT [Suspect]
     Active Substance: ABATACEPT
     Indication: RHEUMATOID ARTHRITIS
     Dosage: 750 MG, Q4WK
     Route: 042
     Dates: start: 20150305, end: 20180926

REACTIONS (8)
  - Colitis ulcerative [Unknown]
  - Bronchitis [Unknown]
  - Inflammation [Unknown]
  - Diverticulitis [Unknown]
  - Phlebitis [Unknown]
  - Product dose omission [Unknown]
  - Eye disorder [Unknown]
  - Influenza [Unknown]

NARRATIVE: CASE EVENT DATE: 20170809
